FAERS Safety Report 12797888 (Version 1)
Quarter: 2016Q3

REPORT INFORMATION
  Report Type: Spontaneous
  Country: GB (occurrence: GB)
  Receive Date: 20160930
  Receipt Date: 20160930
  Transmission Date: 20161109
  Serious: Yes (Death, Hospitalization, Other)
  Sender: FDA-Public Use
  Company Number: GB-GLAXOSMITHKLINE-GB2016140478

PATIENT
  Sex: Male

DRUGS (1)
  1. SALBUTAMOL [Suspect]
     Active Substance: ALBUTEROL
     Indication: PRODUCT USED FOR UNKNOWN INDICATION
     Dosage: 5MG/2.5ML
     Route: 065

REACTIONS (3)
  - Cerebrovascular accident [Fatal]
  - Blood glucose increased [Unknown]
  - Blood pressure increased [Fatal]

NARRATIVE: CASE EVENT DATE: 20130705
